FAERS Safety Report 5533097-6 (Version None)
Quarter: 2007Q4

REPORT INFORMATION
  Report Type: 
  Country: None (occurrence: None)
  Receive Date: 20071204
  Receipt Date: 20071122
  Transmission Date: 20080405
  Serious: Yes (Death)
  Sender: FDA-Public Use
  Company Number: IN-GENENTECH-252031

PATIENT
  Sex: Male

DRUGS (1)
  1. MABTHERA [Suspect]
     Indication: LUPUS NEPHRITIS
     Dosage: UNK, UNKNOWN
     Route: 065

REACTIONS (1)
  - PNEUMONIA [None]
